FAERS Safety Report 26107260 (Version 1)
Quarter: 2025Q4

REPORT INFORMATION
  Report Type: Spontaneous
  Country: US (occurrence: US)
  Receive Date: 20251201
  Receipt Date: 20251201
  Transmission Date: 20260118
  Serious: Yes (Death)
  Sender: ROCHE
  Company Number: US-ROCHE-10000443106

PATIENT

DRUGS (1)
  1. AVASTIN [Suspect]
     Active Substance: BEVACIZUMAB
     Indication: Product used for unknown indication
     Dosage: ON 29/NOV/2017, DOSE RECEIVED (600 MG)- 3 VIALS, ON 20/DEC/2017, DOSE RECEIVED (600 MG)- 3 VIALS, ON
     Route: 065
     Dates: start: 20171129, end: 20180117

REACTIONS (1)
  - Death [Fatal]
